FAERS Safety Report 6907228-7 (Version None)
Quarter: 2010Q3

REPORT INFORMATION
  Report Type: 
  Country: None (occurrence: None)
  Receive Date: 20100804
  Receipt Date: 20100728
  Transmission Date: 20110219
  Serious: Yes (Hospitalization, Other)
  Sender: FDA-Public Use
  Company Number: US-AMGEN-QUU423136

PATIENT
  Sex: Female
  Weight: 80.4 kg

DRUGS (9)
  1. NPLATE [Suspect]
     Indication: IDIOPATHIC THROMBOCYTOPENIC PURPURA
     Route: 058
     Dates: start: 20100308
  2. CORTICOSTEROIDS [Concomitant]
     Dates: start: 20091231
  3. PREDNISONE [Concomitant]
     Route: 048
  4. HYDROXOCOBALAMIN [Concomitant]
  5. TRAMADOL HYDROCHLORIDE [Concomitant]
     Route: 048
  6. BENADRYL [Concomitant]
     Route: 048
  7. DOCUSATE SODIUM [Concomitant]
     Route: 048
  8. PROPOXYPHENE HYDROCHLORIDE [Concomitant]
     Route: 048
  9. ALPRAZOLAM [Concomitant]
     Route: 048

REACTIONS (8)
  - CONSTIPATION [None]
  - DEEP VEIN THROMBOSIS [None]
  - DEHYDRATION [None]
  - ELECTROLYTE IMBALANCE [None]
  - FLUID IMBALANCE [None]
  - PYREXIA [None]
  - RENAL FAILURE ACUTE [None]
  - URINARY TRACT INFECTION [None]
